FAERS Safety Report 7288108-7 (Version None)
Quarter: 2011Q1

REPORT INFORMATION
  Report Type: 
  Country: None (occurrence: None)
  Receive Date: 20110211
  Receipt Date: 20101021
  Transmission Date: 20110831
  Serious: No
  Sender: FDA-Public Use
  Company Number: US-BAYER-201022817BCC

PATIENT
  Sex: Female
  Weight: 92.727 kg

DRUGS (3)
  1. ONE A DAY ENERGY [Suspect]
     Indication: VITAMIN SUPPLEMENTATION
     Dosage: 1 DF, QD
     Route: 048
     Dates: start: 20101012
  2. ALEVE [Suspect]
     Indication: ANALGESIC THERAPY
     Dosage: UNK
     Route: 048
     Dates: end: 20100301
  3. ZYRTEC [Concomitant]

REACTIONS (3)
  - GASTROOESOPHAGEAL REFLUX DISEASE [None]
  - ABDOMINAL PAIN UPPER [None]
  - MUSCLE SPASMS [None]
